FAERS Safety Report 6884861-2 (Version None)
Quarter: 2010Q3

REPORT INFORMATION
  Report Type: 
  Country: None (occurrence: None)
  Receive Date: 20100729
  Receipt Date: 20070917
  Transmission Date: 20110219
  Serious: No
  Sender: FDA-Public Use
  Company Number: US-PFIZER INC-2007076753

PATIENT

DRUGS (5)
  1. CELEBREX [Suspect]
     Indication: CHONDROCALCINOSIS
     Route: 048
     Dates: start: 20040101
  2. CELEBREX [Suspect]
     Indication: OSTEOARTHRITIS
  3. CELEBREX [Suspect]
     Indication: RHEUMATOID ARTHRITIS
  4. LIPITOR [Concomitant]
     Indication: BLOOD CHOLESTEROL INCREASED
  5. VIOXX [Concomitant]

REACTIONS (2)
  - ARTHRALGIA [None]
  - PAIN [None]
